FAERS Safety Report 5530039-4 (Version None)
Quarter: 2007Q4

REPORT INFORMATION
  Report Type: 
  Country: None (occurrence: None)
  Receive Date: 20071127
  Receipt Date: 20071112
  Transmission Date: 20080405
  Serious: Yes (Death, Life-Threatening)
  Sender: FDA-Public Use
  Company Number: 2007002049

PATIENT
  Age: 48 Year
  Sex: Female
  Weight: 46.3 kg

DRUGS (3)
  1. ERLOTINIB (TABLET) [Suspect]
     Indication: NON-SMALL CELL LUNG CANCER
     Dosage: 150 MG, QD, ORAL
     Route: 048
     Dates: start: 20070824
  2. BEVACIZUMAB (INJECTION FOR INFUSION) [Suspect]
     Indication: NON-SMALL CELL LUNG CANCER
     Dosage: 735MG, Q3W, INTRAVENOUS
     Route: 042
     Dates: start: 20070824
  3. BEVACIZUMAB (INJECTION FOR INFUSION) [Suspect]

REACTIONS (4)
  - ELECTROMECHANICAL DISSOCIATION [None]
  - PULMONARY HAEMORRHAGE [None]
  - PULSE ABSENT [None]
  - RESPIRATORY ARREST [None]
